FAERS Safety Report 5775161-2 (Version None)
Quarter: 2008Q2

REPORT INFORMATION
  Report Type: 
  Country: None (occurrence: None)
  Receive Date: 20080617
  Receipt Date: 20080605
  Transmission Date: 20081010
  Serious: Yes (Hospitalization)
  Sender: FDA-Public Use
  Company Number: FR-BRISTOL-MYERS SQUIBB COMPANY-14193239

PATIENT
  Age: 73 Year
  Sex: Female

DRUGS (5)
  1. IXABEPILONE [Suspect]
     Indication: BREAST CANCER METASTATIC
     Route: 042
     Dates: start: 20080317, end: 20080509
  2. AVASTIN [Suspect]
     Indication: BREAST CANCER METASTATIC
     Route: 042
     Dates: start: 20080317, end: 20080510
  3. TRAMADOL HCL [Concomitant]
     Dates: start: 20080317
  4. LYRICA [Concomitant]
     Dates: start: 20080317
  5. LOXEN [Concomitant]
     Dates: start: 20080509, end: 20080601

REACTIONS (3)
  - ABDOMINAL ABSCESS [None]
  - HYPERTENSION [None]
  - LARGE INTESTINE PERFORATION [None]
